FAERS Safety Report 15759974 (Version 1)
Quarter: 2018Q4

REPORT INFORMATION
  Report Type: Spontaneous
  Country: DK (occurrence: DK)
  Receive Date: 20181226
  Receipt Date: 20181226
  Transmission Date: 20190205
  Serious: Yes (Other)
  Sender: FDA-Public Use
  Company Number: DK-TEVA-2018-DK-990396

PATIENT
  Age: 39 Year
  Sex: Female

DRUGS (12)
  1. GABARATIO [Suspect]
     Active Substance: GABAPENTIN
     Indication: NEURALGIA
     Dosage: DOSIS: 17MAJ2017-12JUL2017 300 MG X 3 DGL.
     Route: 048
     Dates: start: 20170517, end: 20170928
  2. TADOL [Suspect]
     Active Substance: TRAMADOL HYDROCHLORIDE
     Indication: PAIN
     Dosage: DOSE: 1 CAPSULE IF NEEDED, NO MORE THAN 3 TIMES DAILY.
     Route: 048
     Dates: start: 20160817
  3. SIFROL [Suspect]
     Active Substance: PRAMIPEXOLE
     Indication: RESTLESS LEGS SYNDROME
     Dosage: .09 MILLIGRAM DAILY;
     Route: 048
     Dates: start: 20180322
  4. PAMOL [Concomitant]
     Active Substance: ACETAMINOPHEN
     Indication: PAIN
     Dosage: DOSE: 1 G IF NEEDED, NO MORE THAN 3 TIMES DAILY.
     Route: 048
     Dates: start: 20170518
  5. DICLOXACILLIN [Concomitant]
     Active Substance: DICLOXACILLIN
     Indication: INFECTION
     Dosage: 3 GRAM DAILY;
     Route: 048
     Dates: start: 20170509, end: 20170519
  6. UNIKALK MED D-VITAMIN [Concomitant]
     Indication: MINERAL SUPPLEMENTATION
     Dosage: 2 DOSAGE FORMS DAILY; STRENGTH: 400 MG + 19 MICROGRAMS.
     Route: 048
     Dates: start: 20170424
  7. PREGABALIN ^TEVA^ [Suspect]
     Active Substance: PREGABALIN
     Indication: PAIN
     Dosage: STRENGTH: 75 MG AND 150 MG. ?DOSE: 12JAN2018-22MAJ2018 75 MG X 1 DGL. FROM 22MAJ2018 150 MG X 4 DGL.
     Route: 048
     Dates: start: 20180112
  8. DULOXETINE ^TEVA^ [Suspect]
     Active Substance: DULOXETINE
     Indication: NEURALGIA
     Dosage: STRENGTH: 30 MG AND 60 MG.?DOSE: 22MAR2018-17MAJ2018: UNKNOWN. 17MAJ2018-14AUG2018 60 MG X 3 DGL.
     Route: 048
     Dates: start: 20180322, end: 20180814
  9. LEVAXIN [Concomitant]
     Active Substance: LEVOTHYROXINE SODIUM
     Indication: HYPOTHYROIDISM
     Dosage: 50 MICROGRAM DAILY;
     Route: 048
     Dates: start: 20160926, end: 20170817
  10. SAROTEN [Suspect]
     Active Substance: AMITRIPTYLINE
     Indication: NEURALGIA
     Dosage: STRENGTH 10 MG + 25 MG?DOSE 10 MG DGL. WITH AN INCREASE. SECOND WEEK WITH 10 MG TO MAX. DOSE OF 75 M
     Route: 048
     Dates: start: 20170928, end: 20180112
  11. NEVANAC [Concomitant]
     Active Substance: NEPAFENAC
     Indication: INFLAMMATION
     Dosage: 3 DOSAGE FORMS DAILY;
     Route: 050
     Dates: start: 20170424
  12. PRIMCILLIN [Concomitant]
     Active Substance: PENICILLIN V POTASSIUM
     Indication: INFECTION
     Dosage: 2400 MILLIGRAM DAILY;
     Route: 048
     Dates: start: 20170509, end: 20170519

REACTIONS (19)
  - Gait disturbance [Unknown]
  - Night blindness [Unknown]
  - Fatigue [Unknown]
  - Vomiting [Unknown]
  - Memory impairment [Unknown]
  - Dizziness [Unknown]
  - Tinnitus [Unknown]
  - Feeling abnormal [Unknown]
  - Headache [Unknown]
  - Vision blurred [Unknown]
  - Muscular weakness [Unknown]
  - Palpitations [Unknown]
  - Micturition urgency [Unknown]
  - Urticaria [Unknown]
  - Hypoacusis [Unknown]
  - Visual impairment [Unknown]
  - Arrhythmia [Unknown]
  - Disturbance in attention [Unknown]
  - Visual field defect [Unknown]
